FAERS Safety Report 4694017-X (Version None)
Quarter: 2005Q2

REPORT INFORMATION
  Report Type: 
  Country: None (occurrence: None)
  Receive Date: 20050616
  Receipt Date: 20050606
  Transmission Date: 20051028
  Serious: Yes (Death)
  Sender: FDA-Public Use
  Company Number: 2005-01956

PATIENT
  Age: 46 Year
  Sex: 0

DRUGS (4)
  1. DIAZEPAM [Suspect]
     Indication: BACK PAIN
     Dosage: ORAL
     Route: 048
  2. DIAZEPAM [Suspect]
     Indication: NECK PAIN
     Dosage: ORAL
     Route: 048
  3. OXYCODONE HCL [Suspect]
     Indication: BACK PAIN
     Dosage: ORAL
     Route: 048
  4. OXYCODONE HCL [Suspect]
     Indication: NECK PAIN
     Dosage: ORAL
     Route: 048

REACTIONS (1)
  - MULTIPLE DRUG OVERDOSE [None]
